FAERS Safety Report 6546024-X (Version None)
Quarter: 2010Q1

REPORT INFORMATION
  Report Type: 
  Country: None (occurrence: None)
  Receive Date: 20100121
  Receipt Date: 20100121
  Transmission Date: 20100710
  Serious: Yes (Hospitalization, Other)
  Sender: FDA-Public Use
  Company Number: None

PATIENT
  Age: 42 Year
  Sex: Male
  Weight: 95.2554 kg

DRUGS (1)
  1. LAMOTRIGINE 200MG TEVA -GENERIC- [Suspect]
     Indication: BIPOLAR DISORDER
     Dosage: 400MG 1X/DAY PO
     Route: 048
     Dates: start: 20091225, end: 20100115

REACTIONS (4)
  - AGGRESSION [None]
  - HOSTILITY [None]
  - IRRITABILITY [None]
  - PHYSICAL ASSAULT [None]
